FAERS Safety Report 7267813-2 (Version None)
Quarter: 2011Q1

REPORT INFORMATION
  Report Type: 
  Country: None (occurrence: None)
  Receive Date: 20110201
  Receipt Date: 20110124
  Transmission Date: 20110831
  Serious: Yes (Hospitalization)
  Sender: FDA-Public Use
  Company Number: B0687860A

PATIENT
  Sex: Male
  Weight: 63 kg

DRUGS (20)
  1. ISCOTIN [Concomitant]
     Dosage: 300MG PER DAY
     Route: 048
     Dates: start: 20080126, end: 20080626
  2. TAKEPRON [Concomitant]
     Dosage: 15MG PER DAY
     Route: 048
     Dates: start: 20080215
  3. OXYCONTIN [Concomitant]
     Dosage: 10MG PER DAY
     Route: 048
     Dates: start: 20080122, end: 20080829
  4. GASTER [Concomitant]
     Dosage: 2IUAX PER DAY
     Route: 042
     Dates: start: 20080620, end: 20080623
  5. ACICLOVIR [Concomitant]
     Dosage: 1000MG PER DAY
     Route: 048
     Dates: start: 20080621, end: 20080711
  6. ALKERAN [Suspect]
     Indication: STEM CELL TRANSPLANT
     Dosage: 100MGM2 PER DAY
     Route: 042
     Dates: start: 20080617, end: 20080618
  7. NEUTROGIN [Concomitant]
     Route: 058
     Dates: start: 20080621, end: 20080702
  8. MECOBALAMIN [Concomitant]
     Dosage: 1500MCG PER DAY
     Route: 048
     Dates: start: 20080128
  9. MEYLON [Concomitant]
     Dosage: 80ML PER DAY
     Route: 042
     Dates: start: 20080613, end: 20080619
  10. FUROSEMIDE [Concomitant]
     Dosage: 40MG PER DAY
     Route: 042
     Dates: start: 20080618, end: 20080619
  11. PRIMPERAN TAB [Concomitant]
     Dosage: 2IUAX PER DAY
     Dates: start: 20080618, end: 20080620
  12. FULCALIQ [Concomitant]
     Dosage: 2IUAX PER DAY
     Route: 042
     Dates: start: 20080616, end: 20080703
  13. VICCLOX [Concomitant]
     Dosage: 750MG PER DAY
     Route: 042
     Dates: start: 20080625, end: 20080630
  14. VITAMEDIN [Concomitant]
     Dosage: 75MG PER DAY
     Route: 048
     Dates: start: 20080218
  15. VFEND [Concomitant]
     Dosage: 400MG PER DAY
     Route: 048
     Dates: start: 20080325
  16. KYTRIL [Concomitant]
     Dosage: 6MG PER DAY
     Route: 042
     Dates: start: 20080617, end: 20080618
  17. SULFAMETHOXAZOLE [Concomitant]
     Route: 048
     Dates: start: 20080707
  18. AZULENE SODIUM SULPHONATE + GLUTAMINE [Concomitant]
     Dosage: 1.5G PER DAY
     Route: 048
     Dates: start: 20080203, end: 20080719
  19. CIPROFLOXACIN [Concomitant]
     Dosage: 600MG PER DAY
     Route: 048
     Dates: start: 20080612, end: 20080711
  20. IMMUNE GLOBULIN (HUMAN) [Concomitant]
     Dosage: 5G PER DAY
     Route: 042
     Dates: start: 20080624, end: 20080626

REACTIONS (2)
  - LIVER DISORDER [None]
  - DERMATITIS BULLOUS [None]
